FAERS Safety Report 7258194-9 (Version None)
Quarter: 2011Q1

REPORT INFORMATION
  Report Type: 
  Country: None (occurrence: None)
  Receive Date: 20110129
  Receipt Date: 20100706
  Transmission Date: 20110831
  Serious: No
  Sender: FDA-Public Use
  Company Number: US-ABBOTT-10P-163-0655896-00

PATIENT
  Sex: Female
  Weight: 102.6 kg

DRUGS (17)
  1. POTASSIUM CHLORIDE [Concomitant]
     Indication: MINERAL SUPPLEMENTATION
  2. MOBIC [Concomitant]
     Indication: PAIN
  3. SYNTHROID [Concomitant]
     Indication: HYPOTHYROIDISM
  4. NEXIUM [Concomitant]
     Indication: DYSPEPSIA
  5. LASIX [Concomitant]
     Indication: FLUID RETENTION
  6. METHADONE [Concomitant]
     Indication: PAIN
  7. HUMIRA [Suspect]
     Indication: PSORIATIC ARTHROPATHY
     Dates: start: 20100630
  8. BIOTIN [Concomitant]
     Indication: ALOPECIA
  9. ZANTAC [Concomitant]
     Indication: DYSPEPSIA
  10. NUVIGIL [Concomitant]
     Indication: SOMNOLENCE
  11. CLONIDINE [Concomitant]
     Indication: HYPERTENSION
  12. ULTRAM [Concomitant]
     Indication: PAIN
  13. SERZONE [Concomitant]
     Indication: MIGRAINE
  14. ZYRTEC [Concomitant]
     Indication: HYPERSENSITIVITY
  15. LOVAZA [Concomitant]
     Indication: CONVULSION PROPHYLAXIS
  16. FOLIC ACID [Concomitant]
     Indication: PSORIATIC ARTHROPATHY
  17. ALLEGRA [Concomitant]
     Indication: HYPERSENSITIVITY

REACTIONS (3)
  - WRONG TECHNIQUE IN DRUG USAGE PROCESS [None]
  - MUSCULOSKELETAL STIFFNESS [None]
  - MOBILITY DECREASED [None]
